FAERS Safety Report 22015725 (Version 1)
Quarter: 2023Q1

REPORT INFORMATION
  Report Type: Spontaneous
  Country: US (occurrence: US)
  Receive Date: 20230221
  Receipt Date: 20230221
  Transmission Date: 20230418
  Serious: Yes (Other)
  Sender: FDA-Public Use
  Company Number: US-PFIZER INC-202300068935

PATIENT
  Age: 65 Year
  Sex: Female

DRUGS (1)
  1. RITUXIMAB [Suspect]
     Active Substance: RITUXIMAB
     Indication: Systemic lupus erythematosus
     Dosage: UNK

REACTIONS (5)
  - Hypotension [Unknown]
  - Dizziness [Unknown]
  - Immunodeficiency [Unknown]
  - Therapeutic product effect incomplete [Unknown]
  - Off label use [Unknown]
